FAERS Safety Report 22789210 (Version 4)
Quarter: 2023Q4

REPORT INFORMATION
  Report Type: Report from Study
  Country: DE (occurrence: DE)
  Receive Date: 20230804
  Receipt Date: 20231128
  Transmission Date: 20240110
  Serious: Yes (Hospitalization, Other)
  Sender: FDA-Public Use
  Company Number: DE-GLAXOSMITHKLINE-DECH2023EME037228

PATIENT

DRUGS (5)
  1. IBUPROFEN [Suspect]
     Active Substance: IBUPROFEN
     Indication: Arthralgia
     Dosage: 400 MG
     Route: 048
     Dates: start: 20200101
  2. CANDESARTAN [Suspect]
     Active Substance: CANDESARTAN
     Indication: Hypertension
     Dosage: 16 MG, QD
     Route: 048
     Dates: start: 20200101
  3. ENCORAFENIB [Suspect]
     Active Substance: ENCORAFENIB
     Indication: Colorectal cancer metastatic
     Dosage: 300 MG, QD
     Route: 048
     Dates: start: 20230713, end: 20230728
  4. CETUXIMAB [Suspect]
     Active Substance: CETUXIMAB
     Indication: Colorectal cancer metastatic
     Dosage: 1100 MG (EVERY 2 WEEKS)
     Route: 042
     Dates: start: 20230727, end: 20230727
  5. CLEMASTINE [Concomitant]
     Active Substance: CLEMASTINE
     Indication: Antiallergic therapy
     Dosage: 2 MG (EVERY 2 WEEKS)
     Route: 040
     Dates: start: 20230727, end: 20230727

REACTIONS (1)
  - Acute kidney injury [Recovered/Resolved]

NARRATIVE: CASE EVENT DATE: 20230728
